FAERS Safety Report 17152258 (Version 1)
Quarter: 2019Q4

REPORT INFORMATION
  Report Type: Spontaneous
  Country: US (occurrence: US)
  Receive Date: 20191213
  Receipt Date: 20191213
  Transmission Date: 20200122
  Serious: Yes (Hospitalization)
  Sender: FDA-Public Use
  Company Number: US-ENDO PHARMACEUTICALS INC-2019-109110

PATIENT
  Age: 67 Year
  Sex: Male
  Weight: 80.73 kg

DRUGS (1)
  1. XIAFLEX [Suspect]
     Active Substance: COLLAGENASE CLOSTRIDIUM HISTOLYTICUM
     Indication: PEYRONIE^S DISEASE
     Dosage: UNK UNKNOWN, FIRST CYCLE, FIRST INJECTION
     Route: 065
     Dates: start: 20191018, end: 20191018

REACTIONS (4)
  - Penile swelling [Recovering/Resolving]
  - Ecchymosis [Recovering/Resolving]
  - Penile haemorrhage [Recovering/Resolving]
  - Swelling [Recovering/Resolving]

NARRATIVE: CASE EVENT DATE: 20191018
